FAERS Safety Report 7905909-X (Version None)
Quarter: 2011Q4

REPORT INFORMATION
  Report Type: 
  Country: None (occurrence: None)
  Receive Date: 20111108
  Receipt Date: 20111025
  Transmission Date: 20120403
  Serious: Yes (Hospitalization)
  Sender: FDA-Public Use
  Company Number: CIP11001846

PATIENT
  Age: 66 Year
  Sex: Male

DRUGS (17)
  1. TENORETIC 100 [Concomitant]
  2. TICLID [Concomitant]
  3. SALSALATE (SALSALATE) [Concomitant]
  4. ACTONEL [Suspect]
     Indication: OSTEOPENIA
     Dosage: 35 MG ONCE WEEKLY, ORAL   35 MG ONCE WEEKLY, ORAL
     Route: 048
     Dates: end: 20100101
  5. ACTONEL [Suspect]
     Indication: OSTEOPENIA
     Dosage: 35 MG ONCE WEEKLY, ORAL   35 MG ONCE WEEKLY, ORAL
     Route: 048
     Dates: start: 20041215, end: 20050601
  6. FUROSEMIDE [Concomitant]
  7. ZOCOR [Concomitant]
  8. GEMFIBROZIL [Concomitant]
  9. PREDNISONE TAB [Concomitant]
  10. PLENDIL [Concomitant]
  11. ZETIA [Concomitant]
  12. IMURAN [Concomitant]
  13. RELAFEN [Concomitant]
  14. NORVASC [Concomitant]
  15. FOSAMAX [Suspect]
     Dosage: 70 MG ONCE WEEKLY, ORAL
     Route: 048
     Dates: start: 20040512, end: 20040701
  16. VARDENAFIL (VARDENAFIL) [Concomitant]
  17. NIACIN [Concomitant]

REACTIONS (22)
  - ABSCESS JAW [None]
  - GINGIVAL SWELLING [None]
  - ALVEOLAR OSTEITIS [None]
  - SWELLING [None]
  - OSTEOMYELITIS ACUTE [None]
  - OSTEOMYELITIS CHRONIC [None]
  - OSTEONECROSIS OF JAW [None]
  - PURULENT DISCHARGE [None]
  - TENDERNESS [None]
  - EXCESSIVE GRANULATION TISSUE [None]
  - TREATMENT NONCOMPLIANCE [None]
  - PAIN IN JAW [None]
  - MASTICATION DISORDER [None]
  - PROCEDURAL PAIN [None]
  - ABDOMINAL DISCOMFORT [None]
  - WHITE BLOOD CELL COUNT INCREASED [None]
  - SWELLING FACE [None]
  - CELLULITIS [None]
  - TOOTHACHE [None]
  - ALPHA HAEMOLYTIC STREPTOCOCCAL INFECTION [None]
  - WOUND DEHISCENCE [None]
  - DENTAL CARIES [None]
